FAERS Safety Report 14636045 (Version 3)
Quarter: 2020Q1

REPORT INFORMATION
  Report Type: Report from Study
  Country: BR (occurrence: BR)
  Receive Date: 20180314
  Receipt Date: 20200205
  Transmission Date: 20200409
  Serious: Yes (Other)
  Sender: FDA-Public Use
  Company Number: BR-SA-2018SA073930

PATIENT
  Sex: Female
  Weight: 47 kg

DRUGS (2)
  1. INSULIN GLULISINE [Suspect]
     Active Substance: INSULIN GLULISINE
     Indication: DIABETES MELLITUS MANAGEMENT
     Dosage: 2 TO 4 IU, ACCORDING TO THE NEED
     Route: 058
     Dates: start: 2005
  2. LANTUS [Suspect]
     Active Substance: INSULIN GLARGINE
     Indication: DIABETES MELLITUS MANAGEMENT
     Dosage: 12 IU, QD
     Route: 058
     Dates: start: 2005

REACTIONS (6)
  - Injection site thrombosis [Not Recovered/Not Resolved]
  - Injection site reaction [Unknown]
  - Injection site swelling [Not Recovered/Not Resolved]
  - Expired device used [Unknown]
  - Blood pressure increased [Unknown]
  - Device use issue [Unknown]
